FAERS Safety Report 4938469-6 (Version None)
Quarter: 2006Q1

REPORT INFORMATION
  Report Type: 
  Country: None (occurrence: None)
  Receive Date: 20060302
  Receipt Date: 20060221
  Transmission Date: 20060701
  Serious: Yes (Hospitalization, Other)
  Sender: FDA-Public Use
  Company Number: 2005-10-0039

PATIENT
  Age: 48 Year
  Sex: Male
  Weight: 85 kg

DRUGS (10)
  1. PEG-INTRON [Suspect]
     Indication: HEPATITIS C
     Dosage: 60-40 MCG*QW SUBCUTANEOUS
     Route: 058
     Dates: start: 20050719, end: 20050726
  2. PEG-INTRON [Suspect]
     Indication: HEPATITIS C
     Dosage: 60-40 MCG*QW SUBCUTANEOUS
     Route: 058
     Dates: start: 20050719, end: 20050906
  3. PEG-INTRON [Suspect]
     Indication: HEPATITIS C
     Dosage: 60-40 MCG*QW SUBCUTANEOUS
     Route: 058
     Dates: start: 20050802, end: 20050906
  4. REBETOL [Suspect]
     Indication: HEPATITIS C
     Dosage: 800-400*MG ORAL
     Route: 048
     Dates: start: 20050719, end: 20050815
  5. REBETOL [Suspect]
     Indication: HEPATITIS C
     Dosage: 800-400*MG ORAL
     Route: 048
     Dates: start: 20050719, end: 20050829
  6. REBETOL [Suspect]
     Indication: HEPATITIS C
     Dosage: 800-400*MG ORAL
     Route: 048
     Dates: start: 20050816, end: 20050829
  7. ALLELOCK (OLOPATADINE HCL) TABLETS [Concomitant]
  8. ROHYPNOL TABLETS [Concomitant]
  9. LOXONIN ORALS [Concomitant]
  10. ATARAX-P CAPSULES [Concomitant]

REACTIONS (5)
  - ANAEMIA [None]
  - GENERALISED OEDEMA [None]
  - INSOMNIA [None]
  - NEUROSIS [None]
  - PRURITUS [None]
